FAERS Safety Report 9900027 (Version 1)
Quarter: 2014Q1

REPORT INFORMATION
  Report Type: Spontaneous
  Country: US (occurrence: US)
  Receive Date: 20140214
  Receipt Date: 20140214
  Transmission Date: 20141002
  Serious: No
  Sender: FDA-Public Use
  Company Number: US-VIVUS-2014V1000016

PATIENT
  Age: 49 Year
  Sex: Female
  Weight: 83.99 kg

DRUGS (7)
  1. QSYMIA 3.75MG/23MG [Suspect]
     Indication: WEIGHT DECREASED
     Route: 048
     Dates: start: 20140111
  2. METFORMIN [Concomitant]
     Indication: TYPE 2 DIABETES MELLITUS
     Route: 048
     Dates: start: 2010
  3. VICTOZA [Concomitant]
     Indication: TYPE 2 DIABETES MELLITUS
     Route: 058
     Dates: start: 2011
  4. AMLODIPINE [Concomitant]
     Indication: HYPERTENSION
     Route: 048
     Dates: start: 1992
  5. HCTZ [Concomitant]
     Indication: HYPERTENSION
     Route: 048
     Dates: start: 1992
  6. UNKNOWN STATIN MEDICATION [Concomitant]
     Indication: DYSLIPIDAEMIA
     Route: 048
     Dates: start: 2009
  7. UNKNOWN ESTROGEN HORMONE REPLACEMENT MEDICATION [Concomitant]
     Indication: MENOPAUSE
     Route: 048
     Dates: start: 2010

REACTIONS (1)
  - Somnolence [Not Recovered/Not Resolved]
